FAERS Safety Report 19688913 (Version 1)
Quarter: 2021Q3

REPORT INFORMATION
  Report Type: Spontaneous
  Country: US (occurrence: US)
  Receive Date: 20210811
  Receipt Date: 20210811
  Transmission Date: 20211014
  Serious: No
  Sender: FDA-Public Use
  Company Number: US-SA-2021SA261604

PATIENT
  Age: 41 Year
  Sex: Male

DRUGS (2)
  1. LANTUS SOLOSTAR [Suspect]
     Active Substance: INSULIN GLARGINE
     Dosage: 30 IU, Q12H(30 U AM/30 U PM)
     Route: 065
     Dates: start: 2021
  2. LANTUS SOLOSTAR [Suspect]
     Active Substance: INSULIN GLARGINE
     Indication: TYPE 1 DIABETES MELLITUS
     Dosage: 50 IU(ONCE OR TWICE)
     Route: 065
     Dates: start: 2021

REACTIONS (2)
  - Cough [Unknown]
  - Product prescribing issue [Unknown]
